FAERS Safety Report 7349241-4 (Version None)
Quarter: 2011Q1

REPORT INFORMATION
  Report Type: 
  Country: None (occurrence: None)
  Receive Date: 20110304
  Receipt Date: 20110222
  Transmission Date: 20110831
  Serious: Yes (Other)
  Sender: FDA-Public Use
  Company Number: 028007

PATIENT
  Sex: Female
  Weight: 117.9 kg

DRUGS (5)
  1. CIMZIA [Suspect]
     Indication: RHEUMATOID ARTHRITIS
     Dosage: 400 MG 1X/2 WEEKS, SUBCUTANEOUS, 200 MG 1X2 WEEKS, SUBCUTANEOUS
     Route: 058
     Dates: start: 20110105
  2. CIMZIA [Suspect]
     Indication: RHEUMATOID ARTHRITIS
     Dosage: 400 MG 1X/2 WEEKS, SUBCUTANEOUS, 200 MG 1X2 WEEKS, SUBCUTANEOUS
     Route: 058
     Dates: start: 20101208, end: 20110105
  3. ATENOLOL [Concomitant]
  4. LISINOPRIL [Concomitant]
  5. NEXIUM [Concomitant]

REACTIONS (9)
  - PSORIASIS [None]
  - ACTIVITIES OF DAILY LIVING IMPAIRED [None]
  - PAIN IN EXTREMITY [None]
  - CONDITION AGGRAVATED [None]
  - ABASIA [None]
  - ARTHRALGIA [None]
  - DRUG INEFFECTIVE [None]
  - ASTHENIA [None]
  - MUSCULOSKELETAL PAIN [None]
